FAERS Safety Report 8275548-2 (Version None)
Quarter: 2012Q2

REPORT INFORMATION
  Report Type: 
  Country: None (occurrence: None)
  Receive Date: 20120412
  Receipt Date: 20120405
  Transmission Date: 20120825
  Serious: Yes (Other)
  Sender: FDA-Public Use
  Company Number: US-AMGEN-USASP2012016943

PATIENT
  Age: 47 Year
  Sex: Female
  Weight: 53.061 kg

DRUGS (1)
  1. PROLIA [Suspect]
     Indication: PRODUCT USED FOR UNKNOWN INDICATION
     Dosage: 60 MG, Q6MO
     Route: 058
     Dates: start: 20120304, end: 20120304

REACTIONS (6)
  - ERYTHEMA [None]
  - RASH [None]
  - HOT FLUSH [None]
  - EYE SWELLING [None]
  - SWELLING FACE [None]
  - FACE OEDEMA [None]
